FAERS Safety Report 20857668 (Version 20)
Quarter: 2024Q4

REPORT INFORMATION
  Report Type: Spontaneous
  Country: CA (occurrence: CA)
  Receive Date: 20220521
  Receipt Date: 20241228
  Transmission Date: 20250115
  Serious: Yes (Other)
  Sender: CELLTRION
  Company Number: CA-CELLTRION INC.-2022CA004573

PATIENT

DRUGS (21)
  1. INFLECTRA [Suspect]
     Active Substance: INFLIXIMAB-DYYB
     Indication: Crohn^s disease
     Dosage: 400 MG, Q 0,2,6 WEEKS, THEN Q 8 WEEKS
     Route: 042
     Dates: start: 20220128
  2. INFLECTRA [Suspect]
     Active Substance: INFLIXIMAB-DYYB
     Dosage: 400 MG, 0,2,6 WEEKS, THEN Q 8 WEEKS
     Route: 042
     Dates: start: 20220210
  3. INFLECTRA [Suspect]
     Active Substance: INFLIXIMAB-DYYB
     Dosage: 400 MG, 0,2,6 WEEKS, THEN Q 8 WEEKS
     Route: 042
     Dates: start: 20220305
  4. INFLECTRA [Suspect]
     Active Substance: INFLIXIMAB-DYYB
     Dosage: 400 MG, 0,2,6 WEEKS, THEN Q 8 WEEKS
     Route: 042
     Dates: start: 20220310
  5. INFLECTRA [Suspect]
     Active Substance: INFLIXIMAB-DYYB
     Dosage: 400 MG, 0,2,6 WEEKS, THEN Q 8 WEEKS
     Route: 042
     Dates: start: 20220505
  6. INFLECTRA [Suspect]
     Active Substance: INFLIXIMAB-DYYB
     Dosage: 400 MG, 0,2,6 WEEKS, THEN Q 8 WEEKS
     Route: 042
     Dates: start: 20220630
  7. INFLECTRA [Suspect]
     Active Substance: INFLIXIMAB-DYYB
     Dosage: 400 MG, 0,2,6 WEEKS, THEN Q 8 WEEKS
     Route: 042
     Dates: start: 20220825
  8. INFLECTRA [Suspect]
     Active Substance: INFLIXIMAB-DYYB
     Dosage: 400 MG, Q 0,2,6 WEEKS, THEN Q 8 WEEKS
     Route: 042
     Dates: start: 20221020
  9. INFLECTRA [Suspect]
     Active Substance: INFLIXIMAB-DYYB
     Dosage: 400 MG, (5 MG/KG) EVERY 6 WEEKS (SHOULD HAVE RECEIVED 450MG)
     Route: 042
     Dates: start: 20221207
  10. INFLECTRA [Suspect]
     Active Substance: INFLIXIMAB-DYYB
     Dosage: 450 MG (5 MG/KG), EVERY 6 WEEKS
     Route: 042
     Dates: start: 20230119
  11. INFLECTRA [Suspect]
     Active Substance: INFLIXIMAB-DYYB
     Dosage: 5 MG/KG, EVERY 6 WEEKS
     Route: 042
     Dates: start: 20230301
  12. INFLECTRA [Suspect]
     Active Substance: INFLIXIMAB-DYYB
     Dosage: 920 MG (10 MG/KG), EVERY 6 WEEKS
     Route: 042
     Dates: start: 20230412
  13. INFLECTRA [Suspect]
     Active Substance: INFLIXIMAB-DYYB
     Dosage: 10 MG/KG, EVERY 6 WEEKS
     Route: 042
     Dates: start: 20231011
  14. INFLECTRA [Suspect]
     Active Substance: INFLIXIMAB-DYYB
     Dosage: 1020 MG (10 MG/KG), AFTER 6 WEEKS AND 1 DAY
     Route: 042
     Dates: start: 20231123
  15. INFLECTRA [Suspect]
     Active Substance: INFLIXIMAB-DYYB
     Dosage: 1080 MG (10 MG/KG), EVERY 6 WEEKS
     Route: 042
     Dates: start: 20240103
  16. INFLECTRA [Suspect]
     Active Substance: INFLIXIMAB-DYYB
     Dosage: 1020 MG (10 MG/KG), EVERY 6 WEEKS
     Route: 042
     Dates: start: 20240215
  17. INFLECTRA [Suspect]
     Active Substance: INFLIXIMAB-DYYB
     Dosage: 1090 MG (10 MG/KG) AFTER 7 WEEKS, (EVERY 6 WEEKS)
     Route: 042
     Dates: start: 20240404
  18. INFLECTRA [Suspect]
     Active Substance: INFLIXIMAB-DYYB
     Dosage: 1100 MG, AFTER 6 WEEKS
     Route: 042
     Dates: start: 20240516
  19. INFLECTRA [Suspect]
     Active Substance: INFLIXIMAB-DYYB
     Dosage: 1140 MG, 10MG/KG, EVERY 6 WEEKS
     Route: 042
     Dates: start: 20240627
  20. INFLECTRA [Suspect]
     Active Substance: INFLIXIMAB-DYYB
     Dosage: 10 MG/KG, EVERY 6 WEEKS
     Route: 042
     Dates: start: 20241107
  21. INFLECTRA [Suspect]
     Active Substance: INFLIXIMAB-DYYB
     Dosage: 1200 MG (10 MG/KG), EVERY 6 WEEKS
     Route: 042
     Dates: start: 20241219

REACTIONS (11)
  - Condition aggravated [Recovering/Resolving]
  - Fistula [Recovering/Resolving]
  - Therapeutic response shortened [Unknown]
  - Weight increased [Not Recovered/Not Resolved]
  - Abscess [Recovered/Resolved]
  - Nasopharyngitis [Not Recovered/Not Resolved]
  - Irritable bowel syndrome [Unknown]
  - Off label use [Unknown]
  - Off label use [Unknown]
  - Incorrect dose administered [Unknown]
  - Inappropriate schedule of product administration [Unknown]

NARRATIVE: CASE EVENT DATE: 20220310
